FAERS Safety Report 7275532-1 (Version None)
Quarter: 2011Q1

REPORT INFORMATION
  Report Type: 
  Country: None (occurrence: None)
  Receive Date: 20110204
  Receipt Date: 20110127
  Transmission Date: 20110831
  Serious: Yes (Hospitalization)
  Sender: FDA-Public Use
  Company Number: JP-BRISTOL-MYERS SQUIBB COMPANY-15525041

PATIENT
  Age: 66 Year
  Sex: Male
  Weight: 57 kg

DRUGS (4)
  1. FLUOROURACIL [Suspect]
     Indication: HEAD AND NECK CANCER
     Dosage: 1000MG/M2 AS CONT INF FROM D1-4 OF CYCLE RECENT DOSE(24TH):25DEC10
     Route: 042
     Dates: start: 20100818
  2. CETUXIMAB [Suspect]
     Indication: HEAD AND NECK CANCER
     Dosage: 18AUG10-11JAN11(INT),18JAN11(RESTART) ALSO 400MG/M2 RECENT DOSE(21ST):04JAN11 STRENGTH:5MG/ML
     Route: 042
     Dates: start: 20100818
  3. CALONAL [Concomitant]
     Indication: PYREXIA
     Dates: start: 20110108
  4. CISPLATIN [Suspect]
     Indication: HEAD AND NECK CANCER
     Dosage: RECENT DOSE(6TH):21DEC10
     Route: 042
     Dates: start: 20100818

REACTIONS (1)
  - C-REACTIVE PROTEIN INCREASED [None]
